FAERS Safety Report 10276185 (Version 1)
Quarter: 2014Q2

REPORT INFORMATION
  Report Type: Spontaneous
  Country: US (occurrence: None)
  Receive Date: 20140630
  Receipt Date: 20140630
  Transmission Date: 20141212
  Serious: Yes (Hospitalization)
  Sender: FDA-Public Use
  Company Number: FK201402513

PATIENT
  Age: 64 Year
  Sex: Male

DRUGS (3)
  1. CISPLATIN (MANUFACTURER UNKNOWN) (CISPLATIN) (CISPLATIN) [Suspect]
     Indication: SINONASAL PAPILLOMA
  2. ETOPOSIDE (MANUFACTURER UNKNOWN) (ETOPOSIDE) (ETOPOSIDE) [Suspect]
     Indication: SINONASAL PAPILLOMA
  3. ETOPOSIDE (MANUFACTURER UNKNOWN) (ETOPOSIDE) (ETOPOSIDE) [Suspect]
     Indication: AESTHESIONEUROBLASTOMA

REACTIONS (6)
  - Mucosal inflammation [None]
  - Dysphagia [None]
  - Nausea [None]
  - Vomiting [None]
  - Pain [None]
  - Failure to thrive [None]
